FAERS Safety Report 11677306 (Version 2)
Quarter: 2015Q4

REPORT INFORMATION
  Report Type: Spontaneous
  Country: US (occurrence: US)
  Receive Date: 20151028
  Receipt Date: 20151229
  Transmission Date: 20160304
  Serious: No
  Sender: FDA-Public Use
  Company Number: US-009507513-1510USA007871

PATIENT
  Sex: Female
  Weight: 106.12 kg

DRUGS (1)
  1. NEXPLANON [Suspect]
     Active Substance: ETONOGESTREL
     Indication: CONTRACEPTION
     Dosage: 1 IMPLANT EVERY 3 YEARS
     Route: 058
     Dates: start: 20141212

REACTIONS (2)
  - Device breakage [Not Recovered/Not Resolved]
  - No adverse event [Unknown]
